FAERS Safety Report 6330167-X (Version None)
Quarter: 2009Q3

REPORT INFORMATION
  Report Type: 
  Country: None (occurrence: None)
  Receive Date: 20090827
  Receipt Date: 20090814
  Transmission Date: 20100115
  Serious: Yes (Other)
  Sender: FDA-Public Use
  Company Number: GB-RANBAXY-2009RR-26533

PATIENT
  Age: 61 Year
  Sex: Male
  Weight: 95.25 kg

DRUGS (8)
  1. METFORMIN HCL [Suspect]
     Indication: DIABETES MELLITUS
     Dosage: 1000 MG, BID
     Route: 048
     Dates: start: 20080724, end: 20090609
  2. VILDAGLIPTIN [Suspect]
     Indication: DIABETES MELLITUS
     Dosage: 50 MG, BID
     Route: 048
     Dates: start: 20080724, end: 20090609
  3. BISOPROLOL [Concomitant]
     Dosage: 2.5 MG, QD
  4. FUROSEMIDE [Concomitant]
     Dosage: 20 MG, QD
  5. LERCANIDIPINE [Concomitant]
     Dosage: 20 MG, QD
  6. LISINOPRIL [Concomitant]
     Dosage: 20 MG, QD
  7. OMEPRAZOLE [Concomitant]
     Dosage: 20 MG, QD
  8. SIMVASTATIN [Concomitant]
     Dosage: 20 MG, QD

REACTIONS (1)
  - LIVER FUNCTION TEST ABNORMAL [None]
